FAERS Safety Report 10097871 (Version 1)
Quarter: 2014Q2

REPORT INFORMATION
  Report Type: Spontaneous
  Country: US (occurrence: US)
  Receive Date: 20140423
  Receipt Date: 20140423
  Transmission Date: 20141212
  Serious: No
  Sender: FDA-Public Use
  Company Number: US-BIOGENIDEC-2014BI035698

PATIENT
  Age: 26 Year
  Sex: Female

DRUGS (1)
  1. TECFIDERA [Suspect]
     Indication: MULTIPLE SCLEROSIS
     Dates: start: 20140323

REACTIONS (5)
  - General symptom [Unknown]
  - Hypophagia [Unknown]
  - Weight decreased [Unknown]
  - Malaise [Unknown]
  - Mobility decreased [Unknown]
